FAERS Safety Report 7069760-8 (Version None)
Quarter: 2010Q4

REPORT INFORMATION
  Report Type: 
  Country: None (occurrence: None)
  Receive Date: 20101028
  Receipt Date: 20100601
  Transmission Date: 20110411
  Serious: No
  Sender: FDA-Public Use
  Company Number: US-WYE-H15640610

PATIENT
  Sex: Female
  Weight: 56.75 kg

DRUGS (7)
  1. PROTONIX [Suspect]
     Indication: GASTROOESOPHAGEAL REFLUX DISEASE
     Dates: start: 20100201, end: 20100501
  2. PROTONIX [Suspect]
     Dates: start: 20100501
  3. TIMOLOL MALEATE [Concomitant]
  4. PRAVASTATIN [Concomitant]
  5. TRAMADOL HCL [Concomitant]
  6. LEXAPRO [Concomitant]
  7. ATENOLOL [Concomitant]

REACTIONS (1)
  - DYSGEUSIA [None]
